FAERS Safety Report 9722920 (Version 4)
Quarter: 2014Q1

REPORT INFORMATION
  Report Type: Report from Study
  Country: GB (occurrence: GB)
  Receive Date: 20131202
  Receipt Date: 20140313
  Transmission Date: 20141002
  Serious: Yes (Hospitalization)
  Sender: FDA-Public Use
  Company Number: PHHO2013GB015342

PATIENT
  Sex: 0

DRUGS (11)
  1. ALISKIREN [Suspect]
     Indication: CARDIAC FAILURE CHRONIC
     Dosage: UNK
     Route: 048
     Dates: start: 20101021
  2. ENALAPRIL [Suspect]
     Indication: CARDIAC FAILURE CHRONIC
     Dosage: UNK
     Dates: start: 20101021
  3. BISOPROLOL [Suspect]
     Indication: LEFT VENTRICULAR FAILURE
     Dosage: 25 MG, BID
     Route: 048
     Dates: start: 20020822, end: 20131114
  4. FUROSEMIDE [Suspect]
     Indication: LEFT VENTRICULAR FAILURE
     Dosage: 40 MG, BID
     Route: 048
     Dates: start: 199703, end: 20131114
  5. ASPIRIN [Concomitant]
     Indication: ANGIOPATHY
     Dosage: 75 MG, QD
     Route: 048
     Dates: start: 20080128, end: 20131114
  6. SIMVASTATIN [Concomitant]
     Indication: ANGIOPATHY
     Dosage: 40 MG, QD
     Route: 048
     Dates: end: 20131113
  7. CO-CODAMOL [Concomitant]
     Indication: PROPHYLAXIS
     Dosage: 2 DF, TID
     Route: 048
  8. DIHYDROCODEINE [Concomitant]
     Indication: PROPHYLAXIS
     Dosage: 30 MG, PRN
     Route: 048
  9. DUTASTERIDE [Concomitant]
     Indication: PROSTATIC SPECIFIC ANTIGEN
     Dosage: 500 UG, BID
     Route: 048
     Dates: start: 199902, end: 20131114
  10. RANITIDINE [Concomitant]
     Indication: DUODENAL ULCER
     Dosage: 150 MG, BID
     Route: 048
     Dates: start: 199604, end: 20131114
  11. GTN [Concomitant]
     Indication: CORONARY ARTERY DISEASE
     Dosage: 400 UG, PRN
     Route: 060
     Dates: start: 199604

REACTIONS (2)
  - Circulatory collapse [Recovered/Resolved]
  - Hypotension [Recovered/Resolved]
